FAERS Safety Report 7087067-X (Version None)
Quarter: 2010Q4

REPORT INFORMATION
  Report Type: 
  Country: None (occurrence: None)
  Receive Date: 20101106
  Receipt Date: 20101028
  Transmission Date: 20110411
  Serious: No
  Sender: FDA-Public Use
  Company Number: US-WYE-H18429310

PATIENT

DRUGS (1)
  1. TORISEL [Suspect]
     Dosage: 3 DOSES, FREQUENCY NOT PROVIDED
     Route: 042

REACTIONS (1)
  - BLOOD CREATININE INCREASED [None]
